FAERS Safety Report 11679174 (Version 2)
Quarter: 2015Q4

REPORT INFORMATION
  Report Type: Spontaneous
  Country: US (occurrence: US)
  Receive Date: 20151027
  Receipt Date: 20151104
  Transmission Date: 20160304
  Serious: No
  Sender: FDA-Public Use
  Company Number: US-ELI_LILLY_AND_COMPANY-US201008007714

PATIENT
  Age: 41 Year
  Sex: Female

DRUGS (1)
  1. FORTEO [Suspect]
     Active Substance: TERIPARATIDE

REACTIONS (7)
  - Diarrhoea [Unknown]
  - Asthenia [Unknown]
  - Contusion [Unknown]
  - Headache [Unknown]
  - Limb crushing injury [Unknown]
  - Abdominal pain upper [Unknown]
  - Malaise [Unknown]
